FAERS Safety Report 8618760-2 (Version None)
Quarter: 2012Q3

REPORT INFORMATION
  Report Type: 
  Country: None (occurrence: None)
  Receive Date: 20120816
  Receipt Date: 20120816
  Transmission Date: 20120928
  Serious: Yes (Other)
  Sender: FDA-Public Use
  Company Number: None

PATIENT
  Age: 2 Day
  Sex: Male
  Weight: 61.2356 kg

DRUGS (2)
  1. BUTALBITAL ACETAMINOPHEN AND CAFFEINE [Suspect]
     Indication: HEADACHE
     Dosage: 1-2 TAB EA. 4 HRS PO
     Route: 048
     Dates: start: 20120814, end: 20120814
  2. BUTALBITAL ACETAMINOPHEN AND CAFFEINE [Suspect]
     Indication: HEAD INJURY
     Dosage: 1-2 TAB EA. 4 HRS PO
     Route: 048
     Dates: start: 20120814, end: 20120814

REACTIONS (2)
  - HYPERSOMNIA [None]
  - INSOMNIA [None]
